FAERS Safety Report 15362095 (Version 4)
Quarter: 2018Q4

REPORT INFORMATION
  Report Type: Report from Study
  Country: None (occurrence: US)
  Receive Date: 20180907
  Receipt Date: 20181210
  Transmission Date: 20190204
  Serious: Yes (Other)
  Sender: FDA-Public Use
  Company Number: US-ABBVIE-18S-163-2472183-00

PATIENT
  Age: 69 Year
  Sex: Female

DRUGS (3)
  1. AMANTADINE. [Concomitant]
     Active Substance: AMANTADINE HYDROCHLORIDE
     Indication: PARKINSON^S DISEASE
     Dosage: 25/100
     Route: 048
     Dates: start: 2001
  2. CARBIDOPA/LEVODOPA [Concomitant]
     Active Substance: CARBIDOPA\LEVODOPA
     Indication: PARKINSON^S DISEASE
     Dosage: 25/100
     Route: 048
     Dates: start: 2001
  3. DUOPA [Suspect]
     Active Substance: CARBIDOPA\LEVODOPA
     Indication: PARKINSON^S DISEASE
     Route: 050
     Dates: start: 20171129

REACTIONS (13)
  - On and off phenomenon [Unknown]
  - Incorrect dose administered [Unknown]
  - Feeling abnormal [Unknown]
  - Device occlusion [Unknown]
  - Device issue [Unknown]
  - Mobility decreased [Recovered/Resolved]
  - Dizziness [Unknown]
  - Tremor [Recovered/Resolved]
  - Gait inability [Recovered/Resolved]
  - Medical device change [Recovered/Resolved]
  - Device breakage [Unknown]
  - Fall [Recovered/Resolved]
  - Device dislocation [Unknown]

NARRATIVE: CASE EVENT DATE: 2018
